FAERS Safety Report 26198375 (Version 1)
Quarter: 2025Q4

REPORT INFORMATION
  Report Type: Spontaneous
  Country: US (occurrence: None)
  Receive Date: 20251224
  Receipt Date: 20251224
  Transmission Date: 20260117
  Serious: Yes (Other)
  Sender: FDA-CTU
  Company Number: None

PATIENT
  Sex: Female

DRUGS (12)
  1. SIMLANDI [Suspect]
     Active Substance: ADALIMUMAB-RYVK
     Indication: Rheumatoid arthritis
     Dosage: INJECT 40 MG UNDER THE SKIN (SUBCUTANEOUS INJECTION) EVERY 14 DAYS
     Route: 058
     Dates: start: 20251017
  2. SIMLANDI [Suspect]
     Active Substance: ADALIMUMAB-RYVK
     Indication: Psoriasis
  3. CELEBREX CAP 200MG [Concomitant]
  4. ELIQUIS [Concomitant]
     Active Substance: APIXABAN
  5. FOLIC ACID TAB 400MCG [Concomitant]
  6. METHOTREXATE [Concomitant]
     Active Substance: METHOTREXATE
  7. OXYCONTIN TAB 30MG ER [Concomitant]
  8. SINGULAIR [Concomitant]
     Active Substance: MONTELUKAST SODIUM
  9. VITAMIN D CAP 400UNIT [Concomitant]
  10. WARFARIN [Concomitant]
     Active Substance: WARFARIN
  11. ZOLOFT TAB 50MG [Concomitant]
  12. ZYRTEC ALLGY CAP 10MG [Concomitant]

REACTIONS (2)
  - Loss of personal independence in daily activities [None]
  - Pain [None]
